FAERS Safety Report 8985875 (Version 2)
Quarter: 2013Q1

REPORT INFORMATION
  Report Type: Report from Study
  Country: NL (occurrence: NL)
  Receive Date: 20121226
  Receipt Date: 20130102
  Transmission Date: 20140127
  Serious: Yes (Hospitalization)
  Sender: FDA-Public Use
  Company Number: NL-ASTRAZENECA-2012SE93956

PATIENT
  Sex: Female
  Weight: 79 kg

DRUGS (4)
  1. ARIMIDEX [Suspect]
     Indication: BREAST CANCER FEMALE
     Route: 048
     Dates: start: 20070626, end: 20100626
  2. CAPTOPRIL [Concomitant]
     Dosage: 50/25
     Route: 048
  3. SPIRONOLACTONE [Concomitant]
     Route: 048
  4. METOPROLOL [Concomitant]
     Route: 048

REACTIONS (1)
  - Osteoarthritis [Unknown]
